FAERS Safety Report 6164638-6 (Version None)
Quarter: 2009Q2

REPORT INFORMATION
  Report Type: 
  Country: None (occurrence: None)
  Receive Date: 20090421
  Receipt Date: 20090414
  Transmission Date: 20091009
  Serious: Yes (Hospitalization)
  Sender: FDA-Public Use
  Company Number: 2009SP008155

PATIENT
  Age: 6 Year
  Sex: Male

DRUGS (1)
  1. NASONEX [Suspect]
     Indication: RHINITIS
     Dosage: UNK; NAS

REACTIONS (2)
  - BRONCHOSPASM [None]
  - EAR PAIN [None]
